FAERS Safety Report 20847556 (Version 1)
Quarter: 2022Q2

REPORT INFORMATION
  Report Type: Spontaneous
  Country: US (occurrence: US)
  Receive Date: 20220519
  Receipt Date: 20220519
  Transmission Date: 20220721
  Serious: No
  Sender: FDA-Public Use
  Company Number: US-BIOGEN-2022BI01123886

PATIENT
  Sex: Female

DRUGS (2)
  1. TECFIDERA [Suspect]
     Active Substance: DIMETHYL FUMARATE
     Indication: Multiple sclerosis
     Route: 048
  2. VUMERITY [Suspect]
     Active Substance: DIROXIMEL FUMARATE
     Indication: Multiple sclerosis
     Route: 065

REACTIONS (8)
  - Visual impairment [Unknown]
  - Musculoskeletal disorder [Unknown]
  - Magnetic resonance imaging spinal abnormal [Unknown]
  - Gait disturbance [Unknown]
  - Peroneal nerve palsy [Unknown]
  - Multiple sclerosis relapse [Recovered/Resolved]
  - Rash [Unknown]
  - Flushing [Unknown]
